FAERS Safety Report 12438109 (Version 1)
Quarter: 2016Q2

REPORT INFORMATION
  Report Type: Spontaneous
  Country: US (occurrence: US)
  Receive Date: 20160606
  Receipt Date: 20160606
  Transmission Date: 20160815
  Serious: No
  Sender: FDA-Public Use
  Company Number: US-BAYER-2016-102740

PATIENT
  Age: 56 Year
  Sex: Female
  Weight: 63.49 kg

DRUGS (3)
  1. MILK OF MAGNESIA CHERRY [Suspect]
     Active Substance: MAGNESIUM HYDROXIDE
     Indication: CONSTIPATION
     Dosage: 1 DF, BID
     Route: 048
     Dates: start: 2011
  2. MILK OF MAGNESIA [Suspect]
     Active Substance: MAGNESIUM HYDROXIDE
     Dosage: 1 DF, ONCE
     Route: 048
     Dates: start: 2016, end: 2016
  3. MIRALAX [Suspect]
     Active Substance: POLYETHYLENE GLYCOL 3350
     Indication: CONSTIPATION

REACTIONS (4)
  - Drug ineffective [None]
  - Product use issue [None]
  - Drug prescribing error [None]
  - Vomiting [Recovered/Resolved]

NARRATIVE: CASE EVENT DATE: 2013
